FAERS Safety Report 6738141-6 (Version None)
Quarter: 2010Q2

REPORT INFORMATION
  Report Type: 
  Country: None (occurrence: None)
  Receive Date: 20100524
  Receipt Date: 20100513
  Transmission Date: 20101027
  Serious: Yes (Hospitalization)
  Sender: FDA-Public Use
  Company Number: CH-JNJFOC-20100507609

PATIENT
  Sex: Female

DRUGS (2)
  1. REMICADE [Suspect]
     Indication: PULMONARY SARCOIDOSIS
     Route: 042
  2. REMICADE [Suspect]
     Route: 042

REACTIONS (2)
  - LUNG DISORDER [None]
  - PYREXIA [None]
